FAERS Safety Report 17440110 (Version 1)
Quarter: 2020Q1

REPORT INFORMATION
  Report Type: Other
  Country: CA (occurrence: CA)
  Receive Date: 20200220
  Receipt Date: 20200220
  Transmission Date: 20200409
  Serious: Yes (Disabling)
  Sender: FDA-Public Use
  Company Number: CA-APOTEX-2020AP007713

PATIENT
  Age: 70 Year
  Sex: Male
  Weight: 68 kg

DRUGS (1)
  1. LEVOFLOXACIN. [Suspect]
     Active Substance: LEVOFLOXACIN
     Indication: BRONCHIAL SECRETION RETENTION
     Dosage: 500 MG, QD
     Route: 048

REACTIONS (3)
  - Tendon pain [Not Recovered/Not Resolved]
  - Incorrect dose administered [Not Recovered/Not Resolved]
  - Gait disturbance [Not Recovered/Not Resolved]
